FAERS Safety Report 6476626-0 (Version None)
Quarter: 2009Q4

REPORT INFORMATION
  Report Type: 
  Country: None (occurrence: None)
  Receive Date: 20091204
  Receipt Date: 20091204
  Transmission Date: 20100525
  Serious: Yes (Hospitalization)
  Sender: FDA-Public Use
  Company Number: None

PATIENT
  Age: 50 Year
  Sex: Female
  Weight: 54.4316 kg

DRUGS (2)
  1. ACETAMINOPHEN W/ CODEINE [Suspect]
     Indication: FRACTURE
     Dosage: 2 Q6H PRN P.O. 1930
     Route: 048
     Dates: start: 20091004
  2. ACETAMINOPHEN W/ CODEINE [Suspect]
     Indication: PAIN
     Dosage: 2 Q6H PRN P.O. 1930
     Route: 048
     Dates: start: 20091004

REACTIONS (2)
  - RESPIRATORY DISTRESS [None]
  - UNRESPONSIVE TO STIMULI [None]
